FAERS Safety Report 9233900 (Version 1)
Quarter: 2013Q1

REPORT INFORMATION
  Report Type: Spontaneous
  Country: US (occurrence: None)
  Receive Date: 20121031
  Receipt Date: 20121031
  Transmission Date: 20140127
  Serious: Yes (Other)
  Sender: FDA-Public Use
  Company Number: PHEH2012US013475

PATIENT
  Age: 38 Year
  Sex: Male
  Weight: 83.9 kg

DRUGS (5)
  1. GILENYA [Suspect]
     Indication: RELAPSING-REMITTING MULTIPLE SCLEROSIS
     Route: 048
     Dates: start: 201101
  2. VENLAFAXINE (VENLAFAXINE) [Concomitant]
  3. BACLOFEN (BACLOFEN) [Concomitant]
  4. AMBIEN (ZOLPIDEM TARTRATE) [Concomitant]
  5. VIAGRA (SILDENAFIL CITRATE) [Concomitant]

REACTIONS (3)
  - Multiple sclerosis relapse [None]
  - Nasopharyngitis [None]
  - Central nervous system lesion [None]
